FAERS Safety Report 4284872-X (Version None)
Quarter: 2004Q1

REPORT INFORMATION
  Report Type: 
  Country: None (occurrence: None)
  Receive Date: 20040204
  Receipt Date: 20040126
  Transmission Date: 20041129
  Serious: Yes (Other)
  Sender: FDA-Public Use
  Company Number: PHFR2004GB00789

PATIENT
  Age: 18 Year
  Sex: Female

DRUGS (1)
  1. RITALIN [Suspect]
     Indication: ATTENTION DEFICIT/HYPERACTIVITY DISORDER
     Dosage: 20 MG, BID
     Route: 048

REACTIONS (4)
  - AGGRESSION [None]
  - DRUG DEPENDENCE [None]
  - PSYCHIATRIC SYMPTOM [None]
  - SCHIZOPHRENIA [None]
